FAERS Safety Report 14622989 (Version 3)
Quarter: 2018Q1

REPORT INFORMATION
  Report Type: Spontaneous
  Country: US (occurrence: US)
  Receive Date: 20180311
  Receipt Date: 20180314
  Transmission Date: 20180509
  Serious: Yes (Other)
  Sender: FDA-Public Use
  Company Number: US-009507513-1803USA003811

PATIENT
  Age: 23 Year
  Sex: Female
  Weight: 45.35 kg

DRUGS (1)
  1. NEXPLANON [Suspect]
     Active Substance: ETONOGESTREL
     Indication: CONTRACEPTION
     Dosage: 1 DF, IMPLANT INSIDE THE LEFT ARM
     Route: 059

REACTIONS (3)
  - Abdominal pain lower [Unknown]
  - Vaginal haemorrhage [Unknown]
  - Suicide attempt [Unknown]
